FAERS Safety Report 6177776-9 (Version None)
Quarter: 2009Q2

REPORT INFORMATION
  Report Type: 
  Country: None (occurrence: None)
  Receive Date: 20090504
  Receipt Date: 20090422
  Transmission Date: 20091009
  Serious: Yes (Other)
  Sender: FDA-Public Use
  Company Number: US-BAYER-200911163BCC

PATIENT
  Age: 74 Year
  Sex: Female
  Weight: 91 kg

DRUGS (6)
  1. ASPIRIN [Suspect]
     Indication: DRUG USE FOR UNKNOWN INDICATION
     Dosage: TOTAL DAILY DOSE: 81 MG  UNIT DOSE: 81 MG
     Route: 048
  2. PLAVIX [Suspect]
     Indication: DRUG USE FOR UNKNOWN INDICATION
     Dosage: TOTAL DAILY DOSE: 75 MG  UNIT DOSE: 75 MG
     Route: 048
     Dates: start: 20071101
  3. LISINOPRIL [Concomitant]
     Indication: HYPERTENSION
     Route: 048
  4. OXYBUTYNIN CHLORIDE [Concomitant]
     Indication: POLLAKIURIA
     Route: 048
  5. POTASSIUM CHLORIDE [Concomitant]
     Route: 048
  6. SIMVASTATIN [Concomitant]
     Indication: BLOOD CHOLESTEROL INCREASED
     Route: 048

REACTIONS (3)
  - ADVERSE EVENT [None]
  - GAIT DISTURBANCE [None]
  - HYPOAESTHESIA [None]
